FAERS Safety Report 18772417 (Version 1)
Quarter: 2021Q1

REPORT INFORMATION
  Report Type: Spontaneous
  Country: TH (occurrence: TH)
  Receive Date: 20210122
  Receipt Date: 20210122
  Transmission Date: 20210419
  Serious: Yes (Hospitalization)
  Sender: FDA-Public Use
  Company Number: TH-BAUSCH-BL-2021-001069

PATIENT
  Age: 43 Year
  Sex: Female

DRUGS (7)
  1. CEFAZOLIN [Concomitant]
     Active Substance: CEFAZOLIN
     Indication: ENDOCARDITIS
  2. RIFAMPICIN [Concomitant]
     Active Substance: RIFAMPIN
     Indication: ENDOCARDITIS
  3. BUMETANIDE. [Concomitant]
     Active Substance: BUMETANIDE
     Indication: DIURETIC THERAPY
     Route: 042
  4. GENTAMICIN. [Suspect]
     Active Substance: GENTAMICIN
     Indication: ENDOCARDITIS
  5. RIFAMPICIN [Concomitant]
     Active Substance: RIFAMPIN
     Indication: ENDOCARDITIS
  6. CEFAZOLIN [Concomitant]
     Active Substance: CEFAZOLIN
     Indication: ENDOCARDITIS
  7. GENTAMICIN. [Suspect]
     Active Substance: GENTAMICIN
     Indication: ENDOCARDITIS
     Route: 065

REACTIONS (3)
  - Renal tubular necrosis [Recovering/Resolving]
  - Nephropathy toxic [Recovering/Resolving]
  - Acute kidney injury [Recovering/Resolving]
